FAERS Safety Report 10039850 (Version 1)
Quarter: 2014Q1

REPORT INFORMATION
  Report Type: Spontaneous
  Country: KR (occurrence: KR)
  Receive Date: 20140326
  Receipt Date: 20140326
  Transmission Date: 20141002
  Serious: Yes (Hospitalization)
  Sender: FDA-Public Use
  Company Number: KR-MYLANLABS-2014S1006259

PATIENT
  Age: 49 Year
  Sex: Male

DRUGS (8)
  1. PHENYTOIN [Suspect]
     Indication: INTENTIONAL OVERDOSE
     Dosage: ABOUT 50 PILLS
     Route: 048
  2. PHENYTOIN [Suspect]
     Indication: OFF LABEL USE
     Dosage: ABOUT 50 PILLS
     Route: 048
  3. LAMIVUDINE [Concomitant]
     Indication: ACQUIRED IMMUNODEFICIENCY SYNDROME
     Route: 065
  4. ABACAVIR [Concomitant]
     Indication: ACQUIRED IMMUNODEFICIENCY SYNDROME
     Route: 065
  5. LOPINAVIR [Concomitant]
     Indication: ACQUIRED IMMUNODEFICIENCY SYNDROME
     Route: 065
  6. RITONAVIR [Concomitant]
     Indication: ACQUIRED IMMUNODEFICIENCY SYNDROME
     Route: 065
  7. ASCORBIC ACID [Concomitant]
     Route: 065
  8. PHENYTOIN [Concomitant]
     Indication: TEMPORAL LOBE EPILEPSY
     Route: 048

REACTIONS (5)
  - Intentional overdose [Recovered/Resolved]
  - Toxicity to various agents [Recovered/Resolved]
  - Lung infiltration [Recovered/Resolved]
  - Acute respiratory failure [Recovered/Resolved]
  - Pyrexia [Unknown]
